FAERS Safety Report 8201003-1 (Version None)
Quarter: 2012Q1

REPORT INFORMATION
  Report Type: 
  Country: None (occurrence: None)
  Receive Date: 20120312
  Receipt Date: 20111116
  Transmission Date: 20120608
  Serious: No
  Sender: FDA-Public Use
  Company Number: US-ABBOTT-11P-163-0875145-00

PATIENT
  Sex: Female
  Weight: 79.45 kg

DRUGS (5)
  1. LEVOTHYROXINE SODIUM [Concomitant]
     Dates: end: 20111101
  2. LUPRON DEPOT [Suspect]
     Indication: ENDOMETRIOSIS
     Dates: start: 20110601
  3. LEVOTHYROXINE SODIUM [Concomitant]
     Indication: HYPOTHYROIDISM
     Dates: start: 20111101
  4. FLEXERAL [Concomitant]
     Indication: BACK PAIN
  5. HYDROCODONE BITARTRATE [Concomitant]
     Indication: BACK PAIN

REACTIONS (2)
  - PALPITATIONS [None]
  - EXTRASYSTOLES [None]
